FAERS Safety Report 7605267-4 (Version None)
Quarter: 2011Q3

REPORT INFORMATION
  Report Type: 
  Country: None (occurrence: None)
  Receive Date: 20110712
  Receipt Date: 20110712
  Transmission Date: 20111222
  Serious: No
  Sender: FDA-Public Use
  Company Number: None

PATIENT
  Age: 65 Year
  Sex: Male
  Weight: 76 kg

DRUGS (1)
  1. METOPROLOL TARTRATE [Suspect]
     Dosage: PO
     Route: 048
     Dates: start: 20110119, end: 20110121

REACTIONS (1)
  - CARDIAC ARREST [None]
